FAERS Safety Report 11507381 (Version 1)
Quarter: 2015Q3

REPORT INFORMATION
  Report Type: Spontaneous
  Country: US (occurrence: None)
  Receive Date: 20150914
  Receipt Date: 20150914
  Transmission Date: 20151125
  Serious: Yes (Hospitalization, Other)
  Sender: FDA-Public Use
  Company Number: None

PATIENT
  Age: 69 Year
  Sex: Male
  Weight: 131 kg

DRUGS (14)
  1. ZOFRAN [Concomitant]
     Active Substance: ONDANSETRON HYDROCHLORIDE
  2. ELIQUIS [Suspect]
     Active Substance: APIXABAN
     Indication: DEEP VEIN THROMBOSIS
     Route: 048
     Dates: start: 20150830, end: 20150903
  3. ASA [Concomitant]
     Active Substance: ASPIRIN
  4. FENOFIBRATE. [Concomitant]
     Active Substance: FENOFIBRATE
  5. LYRICA [Concomitant]
     Active Substance: PREGABALIN
  6. LEVEMIR [Concomitant]
     Active Substance: INSULIN DETEMIR
  7. LISINOPRIL. [Concomitant]
     Active Substance: LISINOPRIL
  8. SYMBICORT [Concomitant]
     Active Substance: BUDESONIDE\FORMOTEROL FUMARATE DIHYDRATE
  9. ZANTAC [Concomitant]
     Active Substance: RANITIDINE HYDROCHLORIDE
  10. DOXYCYCLINE. [Concomitant]
     Active Substance: DOXYCYCLINE
  11. LIPITOR [Concomitant]
     Active Substance: ATORVASTATIN CALCIUM
  12. APAP [Concomitant]
     Active Substance: ACETAMINOPHEN
  13. BUMEX [Concomitant]
     Active Substance: BUMETANIDE
  14. METOPROLOL [Concomitant]
     Active Substance: METOPROLOL

REACTIONS (4)
  - Shock haemorrhagic [None]
  - Haematochezia [None]
  - Haemoglobin decreased [None]
  - Diverticulum intestinal haemorrhagic [None]

NARRATIVE: CASE EVENT DATE: 20150903
